FAERS Safety Report 16010515 (Version 7)
Quarter: 2019Q2

REPORT INFORMATION
  Report Type: Spontaneous
  Country: US (occurrence: US)
  Receive Date: 20190225
  Receipt Date: 20190614
  Transmission Date: 20190711
  Serious: Yes (Other)
  Sender: FDA-Public Use
  Company Number: US-PFIZER INC-2019073517

PATIENT
  Age: 54 Year
  Sex: Male
  Weight: 75 kg

DRUGS (5)
  1. LYRICA [Suspect]
     Active Substance: PREGABALIN
     Indication: DIABETIC NEUROPATHY
     Dosage: 25 MG, 3X/DAY
  2. LYRICA [Suspect]
     Active Substance: PREGABALIN
     Indication: NEUROPATHY PERIPHERAL
     Dosage: 100 MG, 3X/DAY
     Route: 048
  3. LYRICA [Suspect]
     Active Substance: PREGABALIN
     Dosage: 100 MG, 4X/DAY[TAKE 1 CAPSULE(S) 4 TIMES A DAY BY ORAL ROUTE]
     Route: 048
     Dates: start: 20190529
  4. LYRICA [Suspect]
     Active Substance: PREGABALIN
     Indication: TYPE 2 DIABETES MELLITUS
     Dosage: 100 MG, 2X/DAY
  5. LYRICA [Suspect]
     Active Substance: PREGABALIN
     Dosage: 150 MG, 2X/DAY
     Route: 048
     Dates: start: 201812

REACTIONS (6)
  - Foot fracture [Unknown]
  - Gait disturbance [Unknown]
  - Fall [Unknown]
  - Therapeutic product effect incomplete [Unknown]
  - Product use issue [Unknown]
  - Off label use [Unknown]
